FAERS Safety Report 5945702-0 (Version None)
Quarter: 2008Q4

REPORT INFORMATION
  Report Type: 
  Country: None (occurrence: None)
  Receive Date: 20081105
  Receipt Date: 20081027
  Transmission Date: 20090506
  Serious: Yes (Death, Hospitalization)
  Sender: FDA-Public Use
  Company Number: 2008SP021794

PATIENT
  Age: 4 Year
  Sex: Male

DRUGS (1)
  1. TEMODAL [Suspect]
     Indication: GLIOMATOSIS CEREBRI
     Dosage: PO
     Route: 048
     Dates: end: 20080220

REACTIONS (3)
  - GINGIVAL BLEEDING [None]
  - INTRACRANIAL PRESSURE INCREASED [None]
  - THROMBOCYTOPENIA [None]
